FAERS Safety Report 10037742 (Version 1)
Quarter: 2014Q1

REPORT INFORMATION
  Report Type: Spontaneous
  Country: US (occurrence: None)
  Receive Date: 20140324
  Receipt Date: 20140324
  Transmission Date: 20141002
  Serious: Yes (Hospitalization)
  Sender: FDA-Public Use
  Company Number: IPC201403-000128

PATIENT
  Age: 61 Year
  Sex: Male

DRUGS (1)
  1. WARFARIN (WARFARIN) (WARFARIN) [Suspect]
     Dosage: 5 MG, TWICE DAILY

REACTIONS (9)
  - Haematuria [None]
  - Epistaxis [None]
  - Abdominal pain [None]
  - Prothrombin time prolonged [None]
  - International normalised ratio increased [None]
  - Lower gastrointestinal haemorrhage [None]
  - Gastrooesophageal reflux disease [None]
  - Drug dispensing error [None]
  - Accidental exposure to product [None]
